FAERS Safety Report 5601137-1 (Version None)
Quarter: 2008Q1

REPORT INFORMATION
  Report Type: 
  Country: None (occurrence: None)
  Receive Date: 20080124
  Receipt Date: 20080111
  Transmission Date: 20080703
  Serious: Yes (Other)
  Sender: FDA-Public Use
  Company Number: US-AMGEN-KDL232491

PATIENT
  Sex: Female
  Weight: 65.4 kg

DRUGS (14)
  1. ENBREL [Suspect]
     Indication: RHEUMATOID ARTHRITIS
     Route: 058
     Dates: start: 20030101
  2. METHOTREXATE [Suspect]
  3. PREDNISONE [Concomitant]
  4. NEXIUM [Concomitant]
  5. LISINOPRIL [Concomitant]
  6. DIGOXIN [Concomitant]
  7. TOPROL-XL [Concomitant]
  8. ISOSORBIDE DINITRATE [Concomitant]
  9. LASIX [Concomitant]
  10. ASPIRIN [Concomitant]
  11. QUININE [Concomitant]
  12. CALTRATE [Concomitant]
  13. BONIVA [Concomitant]
  14. ASACOL [Concomitant]

REACTIONS (3)
  - COLON ADENOMA [None]
  - HEPATIC CIRRHOSIS [None]
  - SPLENOMEGALY [None]
